FAERS Safety Report 12192251 (Version 1)
Quarter: 2016Q1

REPORT INFORMATION
  Report Type: Spontaneous
  Country: DE (occurrence: BE)
  Receive Date: 20160318
  Receipt Date: 20160318
  Transmission Date: 20160526
  Serious: Yes (Hospitalization)
  Sender: FDA-Public Use
  Company Number: BE-MERZ NORTH AMERICA, INC.-16MRZ-00193

PATIENT
  Sex: Female

DRUGS (2)
  1. ASCLERA [Suspect]
     Active Substance: POLIDOCANOL
     Indication: VARICOSE VEIN
     Dosage: 2ML
     Route: 042
     Dates: start: 2000
  2. ESTROGEN-PROGESTAGEN [Concomitant]

REACTIONS (4)
  - Phlebitis deep [None]
  - Pain in extremity [None]
  - Deep vein thrombosis [None]
  - Peripheral swelling [None]

NARRATIVE: CASE EVENT DATE: 2000
